FAERS Safety Report 4724972-0 (Version None)
Quarter: 2005Q3

REPORT INFORMATION
  Report Type: 
  Country: None (occurrence: None)
  Receive Date: 20050726
  Receipt Date: 20050716
  Transmission Date: 20060218
  Serious: Yes (Hospitalization)
  Sender: FDA-Public Use
  Company Number: MX-ROCHE-411054

PATIENT
  Age: 45 Year
  Sex: Female
  Weight: 65 kg

DRUGS (1)
  1. XENICAL [Suspect]
     Indication: OVERWEIGHT
     Route: 048
     Dates: start: 20050610, end: 20050611

REACTIONS (4)
  - DIZZINESS [None]
  - HYPOTENSION [None]
  - HYPOTHERMIA [None]
  - VOMITING [None]
